FAERS Safety Report 12209846 (Version 1)
Quarter: 2016Q1

REPORT INFORMATION
  Report Type: Spontaneous
  Country: US (occurrence: US)
  Receive Date: 20160325
  Receipt Date: 20160325
  Transmission Date: 20160526
  Serious: Yes (Death, Other)
  Sender: FDA-Public Use
  Company Number: US-WEST-WARD PHARMACEUTICALS CORP.-US-H14001-16-00460

PATIENT
  Age: 8 Week
  Sex: Male

DRUGS (3)
  1. PHENYTOIN. [Suspect]
     Active Substance: PHENYTOIN
     Route: 065
  2. SILVADENE [Concomitant]
     Active Substance: SILVER SULFADIAZINE
     Indication: EPIDERMOLYSIS BULLOSA
     Route: 061
  3. PHENYTOIN. [Suspect]
     Active Substance: PHENYTOIN
     Indication: EPIDERMOLYSIS BULLOSA
     Route: 065

REACTIONS (4)
  - Bronchiolitis [Fatal]
  - Off label use [Unknown]
  - Pneumonia [Fatal]
  - Sepsis [Fatal]
